FAERS Safety Report 7049548-4 (Version None)
Quarter: 2010Q4

REPORT INFORMATION
  Report Type: 
  Country: None (occurrence: None)
  Receive Date: 20101018
  Receipt Date: 20101005
  Transmission Date: 20110411
  Serious: Yes (Other)
  Sender: FDA-Public Use
  Company Number: B0679547A

PATIENT
  Age: 42 Year
  Sex: Female

DRUGS (1)
  1. NICOTINE [Suspect]
     Dosage: 2MG PER DAY
     Route: 048
     Dates: start: 20040101, end: 20090101

REACTIONS (3)
  - DEPENDENCE [None]
  - HYPERTENSION [None]
  - OVERDOSE [None]
